FAERS Safety Report 16978196 (Version 1)
Quarter: 2019Q4

REPORT INFORMATION
  Report Type: Spontaneous
  Country: PT (occurrence: PT)
  Receive Date: 20191031
  Receipt Date: 20191031
  Transmission Date: 20200122
  Serious: Yes (Hospitalization)
  Sender: FDA-Public Use
  Company Number: PT-ALLERGAN-1943392US

PATIENT
  Sex: Female

DRUGS (5)
  1. AZALIA [Concomitant]
     Route: 048
  2. FOSFOMYCIN TROMETHAMINE - BP [Suspect]
     Active Substance: FOSFOMYCIN TROMETHAMINE
     Indication: URINARY TRACT INFECTION
     Dosage: 2 X 3000 MG
     Route: 048
     Dates: start: 20190930, end: 20191001
  3. ASACOL [Concomitant]
     Active Substance: MESALAMINE
     Indication: COLITIS ULCERATIVE
     Dosage: 2 TB 800 MG, 3XDAY
     Route: 048
  4. SALOFALK ENEMAS [Concomitant]
     Indication: COLITIS ULCERATIVE
     Dosage: 1 DF, QD
     Route: 054
  5. MESALAZINE [Concomitant]
     Active Substance: MESALAMINE
     Dosage: 1000 MG, QD

REACTIONS (4)
  - Diarrhoea [Recovered/Resolved]
  - Nausea [Recovered/Resolved]
  - Liver injury [Unknown]
  - Abdominal pain upper [Recovered/Resolved]

NARRATIVE: CASE EVENT DATE: 20191002
